FAERS Safety Report 8064407-6 (Version None)
Quarter: 2012Q1

REPORT INFORMATION
  Report Type: 
  Country: None (occurrence: None)
  Receive Date: 20120123
  Receipt Date: 20120111
  Transmission Date: 20120608
  Serious: Yes (Other)
  Sender: FDA-Public Use
  Company Number: US-PFIZER INC-US-WYE-H14055710

PATIENT
  Sex: Female

DRUGS (6)
  1. SYNTHROID [Concomitant]
  2. SEROQUEL [Concomitant]
  3. KLONOPIN [Concomitant]
  4. PLAQUENIL [Concomitant]
  5. VIVACTIL [Concomitant]
  6. EFFEXOR XR [Suspect]
     Indication: MAJOR DEPRESSION
     Dosage: UNK
     Route: 065

REACTIONS (4)
  - SUICIDAL IDEATION [None]
  - IMPULSIVE BEHAVIOUR [None]
  - DRUG INEFFECTIVE [None]
  - AKATHISIA [None]
